FAERS Safety Report 6065997-5 (Version None)
Quarter: 2009Q1

REPORT INFORMATION
  Report Type: 
  Country: None (occurrence: None)
  Receive Date: 20090205
  Receipt Date: 20090127
  Transmission Date: 20090719
  Serious: Yes (Other)
  Sender: FDA-Public Use
  Company Number: NO-BAXTER-2009BH001079

PATIENT
  Age: 60 Year
  Sex: Male

DRUGS (30)
  1. HOLOXAN BAXTER [Suspect]
     Indication: SARCOMA
     Route: 065
     Dates: start: 20081114, end: 20081114
  2. HOLOXAN BAXTER [Suspect]
     Route: 065
     Dates: start: 20081114, end: 20081114
  3. HOLOXAN BAXTER [Suspect]
     Route: 065
     Dates: start: 20081117, end: 20081117
  4. HOLOXAN BAXTER [Suspect]
     Route: 065
     Dates: start: 20081208, end: 20081208
  5. HOLOXAN BAXTER [Suspect]
     Route: 065
     Dates: start: 20081117, end: 20081117
  6. HOLOXAN BAXTER [Suspect]
     Route: 065
     Dates: start: 20081208, end: 20081208
  7. HOLOXAN BAXTER [Suspect]
     Route: 065
     Dates: start: 20081209, end: 20081209
  8. HOLOXAN BAXTER [Suspect]
     Route: 065
     Dates: start: 20081209, end: 20081209
  9. HOLOXAN BAXTER [Suspect]
     Route: 065
     Dates: start: 20090113, end: 20090113
  10. HOLOXAN BAXTER [Suspect]
     Route: 065
     Dates: start: 20090113, end: 20090113
  11. HOLOXAN BAXTER [Suspect]
     Route: 065
     Dates: start: 20090116, end: 20090116
  12. HOLOXAN BAXTER [Suspect]
     Route: 065
     Dates: start: 20090116, end: 20090116
  13. BLEOMYCIN GENERIC [Suspect]
     Indication: SARCOMA
     Route: 065
  14. CISPLATIN [Suspect]
     Indication: SARCOMA
     Route: 065
  15. DOXORUBICIN HCL [Suspect]
     Indication: SARCOMA
     Route: 065
  16. MESNA [Suspect]
     Indication: SARCOMA
     Route: 040
  17. MESNA [Suspect]
     Route: 065
  18. FLORINEF [Concomitant]
  19. NATRON [Concomitant]
  20. FRAGMIN [Concomitant]
     Route: 058
  21. FERRO-RETARD [Concomitant]
  22. OXYCONTIN [Concomitant]
  23. LACTULOSE [Concomitant]
  24. ACETAMINOPHEN [Concomitant]
  25. KEFLEX [Concomitant]
  26. FLAGYL [Concomitant]
  27. ALBYL-E [Concomitant]
  28. TAZOCIN [Concomitant]
     Route: 042
  29. OXYNORM [Concomitant]
  30. ZOPICLONE [Concomitant]

REACTIONS (2)
  - ENCEPHALOPATHY [None]
  - MUSCLE TWITCHING [None]
